FAERS Safety Report 24282683 (Version 1)
Quarter: 2024Q3

REPORT INFORMATION
  Report Type: Spontaneous
  Country: US (occurrence: US)
  Receive Date: 20240904
  Receipt Date: 20240904
  Transmission Date: 20241017
  Serious: No
  Sender: BRISTOL MYERS SQUIBB
  Company Number: US-BRISTOL-MYERS SQUIBB COMPANY-2024-135440

PATIENT
  Age: 55 Year
  Sex: Female

DRUGS (9)
  1. POMALYST [Suspect]
     Active Substance: POMALIDOMIDE
     Indication: Plasma cell myeloma
     Route: 048
     Dates: start: 20240312
  2. IMODIUM [Concomitant]
     Active Substance: LOPERAMIDE HYDROCHLORIDE
  3. PEPTO-BISMOL [Concomitant]
     Active Substance: BISMUTH SUBSALICYLATE
     Dosage: 525MG/15ML
  4. HYDROMORPHONE [Concomitant]
     Active Substance: HYDROMORPHONE
  5. ATENOLOL [Concomitant]
     Active Substance: ATENOLOL
  6. ESTRADIOL [Concomitant]
     Active Substance: ESTRADIOL
  7. IBUPROFEN [Concomitant]
     Active Substance: IBUPROFEN
  8. DARZALEX [Concomitant]
     Active Substance: DARATUMUMAB
     Dosage: 400MG/20ML, 1 VIAL
  9. DIPHENHYDRAMINE [Concomitant]
     Active Substance: DIPHENHYDRAMINE
     Dosage: 50MG/ML INJ, 1ML

REACTIONS (1)
  - Bone lesion [Not Recovered/Not Resolved]

NARRATIVE: CASE EVENT DATE: 20240801
